FAERS Safety Report 10590126 (Version 1)
Quarter: 2014Q4

REPORT INFORMATION
  Report Type: Spontaneous
  Country: US (occurrence: None)
  Receive Date: 20141117
  Receipt Date: 20141117
  Transmission Date: 20150529
  Serious: Yes (Hospitalization)
  Sender: FDA-Public Use
  Company Number: None

PATIENT
  Age: 39 Year
  Sex: Female
  Weight: 108.86 kg

DRUGS (14)
  1. SUCRALAFATE [Concomitant]
  2. LOSARTAN [Concomitant]
     Active Substance: LOSARTAN
  3. TRIAMCINOLONE [Concomitant]
     Active Substance: TRIAMCINOLONE
  4. FOLIC ACID. [Concomitant]
     Active Substance: FOLIC ACID
  5. SPRIRONALACTONE [Concomitant]
  6. AMITRIPTYLINE [Concomitant]
     Active Substance: AMITRIPTYLINE
  7. PREDNISONE. [Concomitant]
     Active Substance: PREDNISONE
  8. PROTONIX [Concomitant]
     Active Substance: PANTOPRAZOLE SODIUM
  9. ORPHENADRINE [Concomitant]
     Active Substance: ORPHENADRINE
  10. RESTASIS EYE DROPS [Concomitant]
  11. DIVALPROEX DELAYED RELEASE [Concomitant]
  12. VITAMIN D? [Concomitant]
  13. BENLYSTA [Suspect]
     Active Substance: BELIMUMAB
     Indication: SYSTEMIC LUPUS ERYTHEMATOSUS
     Dosage: 1090 MG  EVERY 2 WEEKS  INTRAVENOUS
     Route: 042
     Dates: start: 20140926, end: 20141024
  14. LEFLUNOMIDE. [Concomitant]
     Active Substance: LEFLUNOMIDE

REACTIONS (1)
  - Deep vein thrombosis [None]

NARRATIVE: CASE EVENT DATE: 20141114
